FAERS Safety Report 6536505-7 (Version None)
Quarter: 2010Q1

REPORT INFORMATION
  Report Type: 
  Country: None (occurrence: None)
  Receive Date: 20100106
  Receipt Date: 20091229
  Transmission Date: 20100710
  Serious: Yes (Hospitalization, Disabling)
  Sender: FDA-Public Use
  Company Number: WAES 0912USA01662

PATIENT
  Age: 66 Year
  Sex: Female
  Weight: 49.4421 kg

DRUGS (18)
  1. CAP VORINOSTAT UNK [Suspect]
     Indication: CHRONIC LYMPHOCYTIC LEUKAEMIA
     Dosage: 400 MG/DAILY/PO
     Route: 048
     Dates: start: 20091119, end: 20091202
  2. INJ RITUXAN UNK [Suspect]
     Indication: CHRONIC LYMPHOCYTIC LEUKAEMIA
     Dosage: 560 MG/1X/IV ; 600 MG/1X/IV ; 600 MG/1X/IV
     Route: 042
     Dates: start: 20091121, end: 20091121
  3. INJ RITUXAN UNK [Suspect]
     Indication: CHRONIC LYMPHOCYTIC LEUKAEMIA
     Dosage: 560 MG/1X/IV ; 600 MG/1X/IV ; 600 MG/1X/IV
     Route: 042
     Dates: start: 20091201, end: 20091201
  4. INJ RITUXAN UNK [Suspect]
     Indication: CHRONIC LYMPHOCYTIC LEUKAEMIA
     Dosage: 560 MG/1X/IV ; 600 MG/1X/IV ; 600 MG/1X/IV
     Route: 042
     Dates: start: 20091207, end: 20091207
  5. LEUSTATIN UNK [Suspect]
     Indication: CHRONIC LYMPHOCYTIC LEUKAEMIA
     Dosage: 7.5 MG/DAILY/IV
     Route: 042
     Dates: start: 20091119, end: 20091123
  6. BENADRYL [Concomitant]
  7. CIPRO [Concomitant]
  8. DECADRON (DEXAMETHASONE SODIUM [Concomitant]
  9. DIFLUCAN [Concomitant]
  10. LEXAPRO [Concomitant]
  11. PREVACID [Concomitant]
  12. SENOKOT [Concomitant]
  13. TYLENOL (CAPLET) [Concomitant]
  14. ZOFRAN [Concomitant]
  15. BLOOD CELLS, RED [Concomitant]
  16. LEVOTHYROXINE SODIUM [Concomitant]
  17. MAGNESIUM HYDROXIDE TAB [Concomitant]
  18. PLATELETS [Concomitant]

REACTIONS (14)
  - ANXIETY [None]
  - BLOOD BLISTER [None]
  - CACHEXIA [None]
  - DRY MOUTH [None]
  - FAILURE TO THRIVE [None]
  - FATIGUE [None]
  - FEBRILE NEUTROPENIA [None]
  - GLOSSODYNIA [None]
  - HERPES SIMPLEX [None]
  - HYPOKALAEMIA [None]
  - INSOMNIA [None]
  - MUCOSAL INFLAMMATION [None]
  - NAUSEA [None]
  - WEIGHT DECREASED [None]
